FAERS Safety Report 16666838 (Version 1)
Quarter: 2019Q3

REPORT INFORMATION
  Report Type: Spontaneous
  Country: US (occurrence: US)
  Receive Date: 20190805
  Receipt Date: 20190805
  Transmission Date: 20191004
  Serious: No
  Sender: FDA-Public Use
  Company Number: US-ACCORD-092570

PATIENT
  Sex: Female

DRUGS (2)
  1. ZOLADEX [Concomitant]
     Active Substance: GOSERELIN ACETATE
     Indication: BREAST CANCER
  2. ANASTROZOLE. [Suspect]
     Active Substance: ANASTROZOLE
     Indication: BREAST CANCER

REACTIONS (7)
  - Arthralgia [Unknown]
  - Headache [Unknown]
  - Sleep disorder [Unknown]
  - Diarrhoea [Unknown]
  - Mood altered [Unknown]
  - Nausea [Unknown]
  - Abdominal pain upper [Unknown]
